FAERS Safety Report 14425590 (Version 1)
Quarter: 2018Q1

REPORT INFORMATION
  Report Type: Spontaneous
  Country: US (occurrence: US)
  Receive Date: 20180122
  Receipt Date: 20180122
  Transmission Date: 20180509
  Serious: Yes (Hospitalization)
  Sender: FDA-Public Use
  Company Number: None

PATIENT
  Age: 92 Year
  Sex: Female

DRUGS (19)
  1. PRILOSEC [Concomitant]
     Active Substance: OMEPRAZOLE MAGNESIUM
  2. SPIRIVA [Concomitant]
     Active Substance: TIOTROPIUM BROMIDE MONOHYDRATE
  3. AMOXICILLIN. [Concomitant]
     Active Substance: AMOXICILLIN
  4. ASPIRIN. [Concomitant]
     Active Substance: ASPIRIN
  5. ATENOLOL. [Concomitant]
     Active Substance: ATENOLOL
  6. LATANOPROST. [Concomitant]
     Active Substance: LATANOPROST
  7. PREDNISONE. [Concomitant]
     Active Substance: PREDNISONE
  8. ADVAIR HFA [Concomitant]
     Active Substance: FLUTICASONE PROPIONATE\SALMETEROL XINAFOATE
  9. BENADRYL [Concomitant]
     Active Substance: DIPHENHYDRAMINE HYDROCHLORIDE
  10. MAGNESIUM [Concomitant]
     Active Substance: MAGNESIUM
  11. VITAMIN D [Concomitant]
     Active Substance: CHOLECALCIFEROL
  12. OMEPRAZOLE. [Concomitant]
     Active Substance: OMEPRAZOLE
  13. BOTOX [Suspect]
     Active Substance: ONABOTULINUMTOXINA
     Indication: POLYNEUROPATHY
     Dosage: OTHER FREQUENCY:EVERY 90 DAYS;?
     Route: 030
     Dates: start: 20151008
  14. CLARITIN [Concomitant]
     Active Substance: LORATADINE
  15. CLONAZEPAM. [Concomitant]
     Active Substance: CLONAZEPAM
  16. FLUTICASONE. [Concomitant]
     Active Substance: FLUTICASONE
  17. LEVOTHYROXINE. [Concomitant]
     Active Substance: LEVOTHYROXINE
  18. TYLENOL [Concomitant]
     Active Substance: ACETAMINOPHEN
  19. ZANTAC [Concomitant]
     Active Substance: RANITIDINE HYDROCHLORIDE

REACTIONS (1)
  - Pneumonia [None]

NARRATIVE: CASE EVENT DATE: 20180111
